FAERS Safety Report 17521663 (Version 1)
Quarter: 2020Q1

REPORT INFORMATION
  Report Type: Report from Study
  Country: DE (occurrence: DE)
  Receive Date: 20200310
  Receipt Date: 20200310
  Transmission Date: 20200409
  Serious: Yes (Other)
  Sender: FDA-Public Use
  Company Number: DE-MYLANLABS-2020M1024452

PATIENT
  Age: 56 Year
  Sex: Female
  Weight: 71 kg

DRUGS (8)
  1. MAVENCLAD [Suspect]
     Active Substance: CLADRIBINE
     Indication: MULTIPLE SCLEROSIS
     Dosage: FIRST WEEK THERAPY: 6 TABLETS AS PER WEIGHT OF 71.2KG.
     Route: 048
     Dates: start: 20190416, end: 20190420
  2. MAVENCLAD [Suspect]
     Active Substance: CLADRIBINE
     Dosage: SECOND WEEK THERAPY:
     Route: 048
     Dates: start: 20190515, end: 20190519
  3. PROMETAZIN [Suspect]
     Active Substance: PROMETHAZINE HYDROCHLORIDE
     Indication: BIPOLAR DISORDER
     Dosage: STRENGTH 25 (UNSPECIFIED UNITS).
     Dates: start: 2014
  4. PROMETAZIN [Suspect]
     Active Substance: PROMETHAZINE HYDROCHLORIDE
     Dosage: SIGNIFICANTLY REDUCED.
     Dates: end: 202001
  5. QUETIAPINE. [Concomitant]
     Active Substance: QUETIAPINE
     Indication: BIPOLAR DISORDER
     Dosage: STRENGTH: 25 (UNSPECIFIED UNITS)
  6. DOXEPIN [Suspect]
     Active Substance: DOXEPIN
     Indication: BIPOLAR DISORDER
     Dosage: FREQUENCY: ONCE
     Dates: end: 202001
  7. GANFORT [Concomitant]
     Active Substance: BIMATOPROST\TIMOLOL
     Indication: GLAUCOMA
     Dosage: UNK
  8. DOXEPIN [Suspect]
     Active Substance: DOXEPIN
     Dosage: FREQUENCY: THREE TIMES TAKING FROM 20 YEARS

REACTIONS (14)
  - Hyperkinetic heart syndrome [Recovering/Resolving]
  - Vitreous opacities [Unknown]
  - Weight increased [Not Recovered/Not Resolved]
  - Nasopharyngitis [Not Recovered/Not Resolved]
  - Bronchial hyperreactivity [Unknown]
  - Tension [Unknown]
  - Panic attack [Unknown]
  - Feeling cold [Unknown]
  - Lymphocyte count decreased [Unknown]
  - Restlessness [Unknown]
  - Sleep disorder [Unknown]
  - Headache [Unknown]
  - Dental cyst [Not Recovered/Not Resolved]
  - Listless [Unknown]

NARRATIVE: CASE EVENT DATE: 20190416
